FAERS Safety Report 24687688 (Version 2)
Quarter: 2024Q4

REPORT INFORMATION
  Report Type: Spontaneous
  Country: BY (occurrence: BY)
  Receive Date: 20241202
  Receipt Date: 20241231
  Transmission Date: 20250115
  Serious: Yes (Other)
  Sender: BAYER HEALTHCARE PHARMACEUTICALS INC.
  Company Number: BY-BAYER-2024A169506

PATIENT
  Age: 51 Year

DRUGS (4)
  1. REGORAFENIB [Suspect]
     Active Substance: REGORAFENIB
     Indication: Gastrointestinal stromal tumour
     Dosage: 160 MG, QD
     Dates: start: 202308, end: 202312
  2. REGORAFENIB [Suspect]
     Active Substance: REGORAFENIB
     Indication: Gastrointestinal stromal tumour
     Dosage: 120 MG, QD
     Dates: start: 202401, end: 202410
  3. REGORAFENIB [Suspect]
     Active Substance: REGORAFENIB
     Indication: Gastrointestinal stromal tumour
     Dosage: 160 MG, QD
     Dates: start: 202411
  4. RIVAROXABAN [Suspect]
     Active Substance: RIVAROXABAN
     Dosage: UNK

REACTIONS (45)
  - Metastases to liver [Not Recovered/Not Resolved]
  - Metastases to lymph nodes [Not Recovered/Not Resolved]
  - Angioedema [None]
  - Haemoptysis [None]
  - Pulmonary haemorrhage [None]
  - Poisoning [None]
  - Haemorrhoids [None]
  - Hypertension [Recovered/Resolved]
  - Stomatitis [Recovered/Resolved]
  - Sinusitis [None]
  - Bronchitis [None]
  - Sputum increased [None]
  - Palmar-plantar erythrodysaesthesia syndrome [Recovered/Resolved]
  - Peripheral swelling [Recovered/Resolved]
  - Dry skin [Recovered/Resolved]
  - Hyperkeratosis [Recovered/Resolved]
  - Pain in extremity [Recovered/Resolved]
  - Peripheral swelling [None]
  - Ear congestion [None]
  - Asthenia [None]
  - Somnolence [None]
  - Apathy [None]
  - Dizziness [None]
  - Dyspnoea [Recovered/Resolved]
  - Influenza like illness [Recovered/Resolved]
  - Hyperthermia [Recovered/Resolved]
  - Arthralgia [Recovered/Resolved]
  - Alopecia [None]
  - Impaired healing [None]
  - Scratch [None]
  - Contusion [None]
  - Abdominal discomfort [None]
  - Abdominal pain [None]
  - Flatulence [None]
  - Abdominal distension [None]
  - Eructation [None]
  - Diarrhoea [None]
  - Constipation [None]
  - Nausea [None]
  - Breath odour [None]
  - Abdominal distension [None]
  - Rash [None]
  - Onychoclasis [None]
  - Epistaxis [None]
  - Drug ineffective [None]

NARRATIVE: CASE EVENT DATE: 20240101
